FAERS Safety Report 16101274 (Version 2)
Quarter: 2019Q2

REPORT INFORMATION
  Report Type: Spontaneous
  Country: US (occurrence: US)
  Receive Date: 20190321
  Receipt Date: 20190607
  Transmission Date: 20190711
  Serious: Yes (Hospitalization, Other)
  Sender: FDA-Public Use
  Company Number: US-AMGEN-USASP2019040718

PATIENT
  Age: 81 Year
  Sex: Female

DRUGS (1)
  1. PROLIA [Suspect]
     Active Substance: DENOSUMAB
     Indication: PRODUCT USED FOR UNKNOWN INDICATION
     Dosage: UNK
     Route: 065

REACTIONS (6)
  - Deafness unilateral [Unknown]
  - Injection site pain [Unknown]
  - Hip fracture [Unknown]
  - Fall [Unknown]
  - Meningitis [Unknown]
  - Head discomfort [Unknown]

NARRATIVE: CASE EVENT DATE: 201711
